FAERS Safety Report 5975949-9 (Version None)
Quarter: 2008Q4

REPORT INFORMATION
  Report Type: 
  Country: None (occurrence: None)
  Receive Date: 20081202
  Receipt Date: 20081125
  Transmission Date: 20090506
  Serious: Yes (Other)
  Sender: FDA-Public Use
  Company Number: US-ASTRAZENECA-2008UW26496

PATIENT
  Age: 4 Year
  Sex: Male
  Weight: 15.9 kg

DRUGS (1)
  1. PULMICORT RESPULES [Suspect]
     Indication: ASTHMA
     Dosage: 0.5 MG DAILY
     Route: 055

REACTIONS (3)
  - COLD SWEAT [None]
  - DYSPNOEA [None]
  - ERYTHEMA [None]
